FAERS Safety Report 6591791-2 (Version None)
Quarter: 2010Q1

REPORT INFORMATION
  Report Type: 
  Country: None (occurrence: None)
  Receive Date: 20100221
  Receipt Date: 20090611
  Transmission Date: 20100710
  Serious: No
  Sender: FDA-Public Use
  Company Number: US-ALLERGAN-0908203US

PATIENT
  Age: 57 Year
  Sex: Female

DRUGS (5)
  1. BOTOX COSMETIC [Suspect]
     Indication: SKIN WRINKLING
     Dosage: 35 UNITS, SINGLE
     Route: 030
     Dates: start: 20090514, end: 20090514
  2. DIOVAN [Concomitant]
  3. PREMARIN [Concomitant]
  4. POTASSIUM [Concomitant]
  5. MAXALT [Concomitant]

REACTIONS (2)
  - EYELID PTOSIS [None]
  - FACIAL PARESIS [None]
